FAERS Safety Report 6708504-3 (Version None)
Quarter: 2010Q2

REPORT INFORMATION
  Report Type: 
  Country: None (occurrence: None)
  Receive Date: 20100503
  Receipt Date: 20090608
  Transmission Date: 20101027
  Serious: No
  Sender: FDA-Public Use
  Company Number: US-ASTRAZENECA-2009UW14759

PATIENT
  Age: 76 Year
  Sex: Female
  Weight: 78 kg

DRUGS (2)
  1. NEXIUM [Suspect]
     Route: 048
     Dates: end: 20090401
  2. TIAZAC [Concomitant]
     Indication: HYPERTENSION

REACTIONS (1)
  - BONE DENSITY DECREASED [None]
